FAERS Safety Report 21847754 (Version 1)
Quarter: 2023Q1

REPORT INFORMATION
  Report Type: Spontaneous
  Country: US (occurrence: US)
  Receive Date: 20230111
  Receipt Date: 20230111
  Transmission Date: 20230417
  Serious: Yes (Other)
  Sender: FDA-Public Use
  Company Number: US-UNITED THERAPEUTICS-UNT-2022-007625

PATIENT
  Age: 9 Year
  Sex: Female
  Weight: 26.5 kg

DRUGS (15)
  1. UNITUXIN [Suspect]
     Active Substance: DINUTUXIMAB
     Indication: Neuroblastoma
     Dosage: 16.8 MG, CYCLICAL (CYCLE 1)
     Route: 041
     Dates: start: 20160613, end: 20160616
  2. UNITUXIN [Suspect]
     Active Substance: DINUTUXIMAB
     Dosage: 16 MG, CYCLICAL (CYCLE 2)
     Route: 041
     Dates: start: 20160711, end: 20160714
  3. UNITUXIN [Suspect]
     Active Substance: DINUTUXIMAB
     Dosage: 15 MG, CYCLICAL (CYCLE 3)
     Route: 041
     Dates: start: 20160808, end: 20160811
  4. UNITUXIN [Suspect]
     Active Substance: DINUTUXIMAB
     Dosage: 7.5 MG, CYCLICAL (CYCLE 4)
     Route: 041
     Dates: start: 20161003, end: 20161006
  5. ALDESLEUKIN [Suspect]
     Active Substance: ALDESLEUKIN
     Indication: Neuroblastoma
     Dosage: 4.1 MIU
     Route: 065
     Dates: start: 20160711, end: 20160714
  6. GRANULOCYTE-MACROPHAGE COLONY-STIMULATING FACTOR [Suspect]
     Active Substance: GRANULOCYTE-MACROPHAGE COLONY-STIMULATING FACTOR
     Indication: Neuroblastoma
     Dosage: 250 MG (CYCLE 1)
     Route: 065
     Dates: start: 20160610, end: 20160623
  7. GRANULOCYTE-MACROPHAGE COLONY-STIMULATING FACTOR [Suspect]
     Active Substance: GRANULOCYTE-MACROPHAGE COLONY-STIMULATING FACTOR
     Dosage: 250 MG (CYCLE 2)
     Route: 065
     Dates: start: 20160805, end: 20160818
  8. GRANULOCYTE-MACROPHAGE COLONY-STIMULATING FACTOR [Suspect]
     Active Substance: GRANULOCYTE-MACROPHAGE COLONY-STIMULATING FACTOR
     Dosage: 212 MG (CYCLE 3)
     Route: 065
     Dates: start: 20160930, end: 20161013
  9. ISOTRETINOIN [Suspect]
     Active Substance: ISOTRETINOIN
     Indication: Neuroblastoma
     Dosage: 90 MG AM, 60 MG PM (CYCLE 1)
     Route: 065
     Dates: start: 20160620, end: 20160703
  10. ISOTRETINOIN [Suspect]
     Active Substance: ISOTRETINOIN
     Dosage: 90 MG AM, 60 MG PM (CYCLE 2)
     Route: 065
     Dates: start: 20160718, end: 20160731
  11. ISOTRETINOIN [Suspect]
     Active Substance: ISOTRETINOIN
     Dosage: 90 MG AM, 60 MG PM (CYCLE 3)
     Route: 065
     Dates: start: 20160815, end: 20160828
  12. ISOTRETINOIN [Suspect]
     Active Substance: ISOTRETINOIN
     Dosage: 90 MG AM, 60 MG PM (CYCLE 4)
     Route: 065
     Dates: start: 20160912, end: 20160925
  13. ISOTRETINOIN [Suspect]
     Active Substance: ISOTRETINOIN
     Dosage: UNK (CYCLE 5)
     Route: 065
  14. ISOTRETINOIN [Suspect]
     Active Substance: ISOTRETINOIN
     Dosage: UNK (CYCLE 6)
     Route: 065
  15. VORINOSTAT [Suspect]
     Active Substance: VORINOSTAT
     Indication: Neuroblastoma
     Dosage: UNK
     Route: 065

REACTIONS (2)
  - Neuroblastoma [Unknown]
  - Mydriasis [Unknown]

NARRATIVE: CASE EVENT DATE: 20170823
